FAERS Safety Report 18975177 (Version 1)
Quarter: 2021Q1

REPORT INFORMATION
  Report Type: Report from Study
  Country: US (occurrence: US)
  Receive Date: 20210305
  Receipt Date: 20210305
  Transmission Date: 20210420
  Serious: Yes (Other)
  Sender: FDA-Public Use
  Company Number: US-MYLANLABS-2021M1010942

PATIENT
  Age: 48 Year
  Sex: Male

DRUGS (2)
  1. URSODIOL CAPSULES [Suspect]
     Active Substance: URSODIOL
     Indication: PRODUCT USED FOR UNKNOWN INDICATION
     Dosage: 10 MILLIGRAM/KILOGRAM, QD
     Route: 065
     Dates: start: 20201101, end: 20201201
  2. OCALIVA [Suspect]
     Active Substance: OBETICHOLIC ACID
     Indication: PRIMARY BILIARY CHOLANGITIS
     Dosage: 10 MILLIGRAM
     Route: 048
     Dates: start: 20201101, end: 20201201

REACTIONS (3)
  - Blood alkaline phosphatase increased [Recovered/Resolved]
  - Drug ineffective [Recovered/Resolved]
  - Disease progression [Recovered/Resolved]

NARRATIVE: CASE EVENT DATE: 2020
